FAERS Safety Report 10093850 (Version 1)
Quarter: 2014Q2

REPORT INFORMATION
  Report Type: Spontaneous
  Country: US (occurrence: US)
  Receive Date: 20140421
  Receipt Date: 20140421
  Transmission Date: 20141212
  Serious: No
  Sender: FDA-Public Use
  Company Number: US-SA-2014SA025728

PATIENT
  Age: 57 Year
  Sex: Female

DRUGS (3)
  1. FEXOFENADINE HYDROCHLORIDE [Suspect]
     Indication: PRODUCTIVE COUGH
     Route: 048
     Dates: start: 20140225, end: 20140226
  2. FEXOFENADINE HYDROCHLORIDE [Suspect]
     Indication: RHINORRHOEA
     Route: 048
     Dates: start: 20140225, end: 20140226
  3. FEXOFENADINE HYDROCHLORIDE [Suspect]
     Indication: SNEEZING
     Route: 048
     Dates: start: 20140225, end: 20140226

REACTIONS (2)
  - Asthenia [Unknown]
  - Pyrexia [Unknown]
